FAERS Safety Report 6273962-8 (Version None)
Quarter: 2009Q3

REPORT INFORMATION
  Report Type: 
  Country: None (occurrence: None)
  Receive Date: 20090720
  Receipt Date: 20090706
  Transmission Date: 20100115
  Serious: Yes (Other)
  Sender: FDA-Public Use
  Company Number: US-ELI_LILLY_AND_COMPANY-US200907001530

PATIENT
  Sex: Female

DRUGS (12)
  1. CYMBALTA [Suspect]
     Indication: FIBROMYALGIA
     Dosage: UNK, DAILY (1/D)
     Dates: start: 20080101
  2. GABAPENTIN [Concomitant]
  3. FLUOXETINE HCL [Concomitant]
     Dosage: 10 MG, UNK
  4. RISPERDAL [Concomitant]
  5. CARBIDOPA-LEVODOPA [Concomitant]
     Indication: PARKINSON'S DISEASE
     Dosage: 1 D/F, 3/D
  6. ACTONEL [Concomitant]
  7. PREDNISONE TAB [Concomitant]
  8. LORAZEPAM [Concomitant]
  9. HYDROCODONE [Concomitant]
  10. ADVAIR HFA [Concomitant]
  11. SINGULAIR [Concomitant]
     Dosage: 10 MG, UNK
  12. COMBIVENT [Concomitant]

REACTIONS (3)
  - FALL [None]
  - VERTEBROPLASTY [None]
  - WRIST FRACTURE [None]
